FAERS Safety Report 20944710 (Version 1)
Quarter: 2022Q2

REPORT INFORMATION
  Report Type: Report from Study
  Country: DE (occurrence: DE)
  Receive Date: 20220610
  Receipt Date: 20220610
  Transmission Date: 20220720
  Serious: Yes (Hospitalization)
  Sender: FDA-Public Use
  Company Number: DE-CELLTRION INC.-2022DE009076

PATIENT

DRUGS (1)
  1. INFLIXIMAB [Suspect]
     Active Substance: INFLIXIMAB
     Indication: Axial spondyloarthritis
     Dosage: 120 MG
     Route: 042
     Dates: start: 20210915

REACTIONS (2)
  - Spinal osteoarthritis [Unknown]
  - Gastritis [Unknown]

NARRATIVE: CASE EVENT DATE: 20211004
